FAERS Safety Report 24709045 (Version 6)
Quarter: 2025Q2

REPORT INFORMATION
  Report Type: Spontaneous
  Country: US (occurrence: US)
  Receive Date: 20241208
  Receipt Date: 20250528
  Transmission Date: 20250717
  Serious: Yes (Hospitalization, Other)
  Sender: SANOFI AVENTIS
  Company Number: US-SA-2024SA360108

PATIENT
  Age: 69 Year
  Sex: Female

DRUGS (2)
  1. DUPIXENT [Suspect]
     Active Substance: DUPILUMAB
     Indication: Asthma
     Route: 058
     Dates: start: 20241112, end: 20241112
  2. DUPIXENT [Suspect]
     Active Substance: DUPILUMAB
     Dosage: 300 MG, QOW
     Route: 058
     Dates: start: 20241126

REACTIONS (5)
  - Weight decreased [Not Recovered/Not Resolved]
  - Diabetes mellitus [Unknown]
  - Neoplasm malignant [Unknown]
  - Swollen tongue [Recovered/Resolved]
  - Injection site pain [Recovered/Resolved]

NARRATIVE: CASE EVENT DATE: 20241130
